FAERS Safety Report 17982906 (Version 1)
Quarter: 2020Q3

REPORT INFORMATION
  Report Type: Spontaneous
  Country: CA (occurrence: CA)
  Receive Date: 20200706
  Receipt Date: 20200706
  Transmission Date: 20201103
  Serious: Yes (Other)
  Sender: FDA-Public Use
  Company Number: CA-ACCORD-188367

PATIENT
  Age: 60 Year
  Sex: Female

DRUGS (7)
  1. HUMIRA [Concomitant]
     Active Substance: ADALIMUMAB
     Dosage: DOSAGE FORM: SOLUTION SUBCUTANEOUS
     Route: 058
  2. METHOTREXATE. [Suspect]
     Active Substance: METHOTREXATE
     Indication: PRODUCT USED FOR UNKNOWN INDICATION
     Dosage: 1 EVERY 1 WEEKS
  3. DEPO?MEDROL [Concomitant]
     Active Substance: METHYLPREDNISOLONE ACETATE
     Route: 030
  4. DEPO?MEDROL [Concomitant]
     Active Substance: METHYLPREDNISOLONE ACETATE
     Dosage: DOSAGE FORM: SUSPENSION INTRA?ARTICULAR
     Route: 030
  5. XELJANZ [Concomitant]
     Active Substance: TOFACITINIB CITRATE
     Dosage: 2 EVERY 1 DAYS
  6. DEPO?MEDROL [Concomitant]
     Active Substance: METHYLPREDNISOLONE ACETATE
     Route: 030
  7. LEFLUNOMIDE. [Concomitant]
     Active Substance: LEFLUNOMIDE
     Dosage: EVERY 1 DAYS

REACTIONS (2)
  - Rheumatoid arthritis [Unknown]
  - Therapeutic product effect incomplete [Unknown]
